FAERS Safety Report 14407974 (Version 1)
Quarter: 2018Q1

REPORT INFORMATION
  Report Type: Spontaneous
  Country: US (occurrence: US)
  Receive Date: 20180118
  Receipt Date: 20180118
  Transmission Date: 20180509
  Serious: No
  Sender: FDA-Public Use
  Company Number: US-DEPOMED, INC.-US-2017DEP000036

PATIENT

DRUGS (2)
  1. FIORICET [Concomitant]
     Active Substance: ACETAMINOPHEN\BUTALBITAL\CAFFEINE
     Indication: HEADACHE
     Dosage: UNK, 2-3 TABLETS BY MOUTH DAILY
     Route: 048
     Dates: start: 2008
  2. NUCYNTA [Suspect]
     Active Substance: TAPENTADOL HYDROCHLORIDE
     Indication: PAIN
     Dosage: 50 MG, QID
     Route: 048
     Dates: start: 20161230

REACTIONS (4)
  - Off label use [Not Recovered/Not Resolved]
  - Drug dose titration not performed [Recovered/Resolved]
  - Muscle contractions involuntary [Not Recovered/Not Resolved]
  - Jaw disorder [Not Recovered/Not Resolved]

NARRATIVE: CASE EVENT DATE: 20161230
